FAERS Safety Report 18107708 (Version 2)
Quarter: 2022Q3

REPORT INFORMATION
  Report Type: Spontaneous
  Country: US (occurrence: US)
  Receive Date: 20200803
  Receipt Date: 20220909
  Transmission Date: 20221026
  Serious: Yes (Hospitalization)
  Sender: FDA-Public Use
  Company Number: US-JNJFOC-20200800736

PATIENT
  Age: 10 Year
  Sex: Male

DRUGS (12)
  1. RISPERIDONE [Suspect]
     Active Substance: RISPERIDONE
     Indication: Affective disorder
     Dosage: IN VARYING DOSES OF 2 MG EVERY 12 HOURS TO 2 MG TABLET 1/4 IN THE MORNING AND 1/2 AT BEDTIME
     Route: 048
     Dates: start: 20120406, end: 201205
  2. RISPERIDONE [Suspect]
     Active Substance: RISPERIDONE
     Route: 048
     Dates: start: 20120516
  3. RISPERIDONE [Suspect]
     Active Substance: RISPERIDONE
     Dosage: A HALF OF A 2 MG PILL TWICE A DAY
     Route: 048
     Dates: start: 20120530
  4. RISPERIDONE [Suspect]
     Active Substance: RISPERIDONE
     Route: 048
     Dates: end: 201309
  5. CONCERTA [Suspect]
     Active Substance: METHYLPHENIDATE HYDROCHLORIDE
     Indication: Attention deficit hyperactivity disorder
     Route: 048
     Dates: end: 201205
  6. CONCERTA [Suspect]
     Active Substance: METHYLPHENIDATE HYDROCHLORIDE
     Route: 048
     Dates: start: 20120530
  7. PROZAC [Suspect]
     Active Substance: FLUOXETINE HYDROCHLORIDE
     Indication: Product used for unknown indication
     Route: 065
     Dates: end: 20120531
  8. PROZAC [Suspect]
     Active Substance: FLUOXETINE HYDROCHLORIDE
     Route: 065
     Dates: start: 20121205
  9. RISPERIDONE [Suspect]
     Active Substance: RISPERIDONE
     Indication: Affective disorder
     Dosage: IN VARYING DOSES OF 2 MG EVERY 12 HOURS TO 2 MG TABLET 1/4 IN THE MORNING AND 1/2 AT BEDTIME
     Route: 065
     Dates: start: 20120406, end: 201205
  10. RISPERIDONE [Suspect]
     Active Substance: RISPERIDONE
     Route: 065
     Dates: start: 20120516
  11. RISPERIDONE [Suspect]
     Active Substance: RISPERIDONE
     Dosage: A HALF OF A 2 MG PILL TWICE A DAY
     Route: 065
     Dates: start: 20120530
  12. RISPERIDONE [Suspect]
     Active Substance: RISPERIDONE
     Route: 065
     Dates: end: 201309

REACTIONS (5)
  - Sedation [Recovering/Resolving]
  - Agitation [Recovering/Resolving]
  - Emotional disorder [Unknown]
  - Gynaecomastia [Unknown]
  - Treatment noncompliance [Unknown]

NARRATIVE: CASE EVENT DATE: 20120501
